FAERS Safety Report 7392862-3 (Version None)
Quarter: 2011Q1

REPORT INFORMATION
  Report Type: 
  Country: None (occurrence: None)
  Receive Date: 20110330
  Receipt Date: 20110330
  Transmission Date: 20110831
  Serious: Yes (Hospitalization)
  Sender: FDA-Public Use
  Company Number: None

PATIENT
  Age: 46 Year
  Sex: Female
  Weight: 56 kg

DRUGS (1)
  1. DEPAKOTE [Suspect]
     Indication: MIGRAINE
     Dosage: 250MG BID PO
     Route: 048
     Dates: start: 20101214, end: 20101227

REACTIONS (2)
  - HEPATIC ENCEPHALOPATHY [None]
  - ALCOHOL POISONING [None]
